FAERS Safety Report 19209546 (Version 1)
Quarter: 2021Q2

REPORT INFORMATION
  Report Type: Spontaneous
  Country: HR (occurrence: HR)
  Receive Date: 20210503
  Receipt Date: 20210503
  Transmission Date: 20210717
  Serious: Yes (Other)
  Sender: FDA-Public Use
  Company Number: HR-009507513-2104HRV007986

PATIENT
  Sex: Male

DRUGS (2)
  1. RECARBRIO [Suspect]
     Active Substance: CILASTATIN\IMIPENEM ANHYDROUS\RELEBACTAM ANHYDROUS
     Indication: RESPIRATORY TRACT INFECTION BACTERIAL
     Dosage: 100 MILLILITER, FOUR TIMES DAILY
     Dates: start: 20210403, end: 20210409
  2. SODIUM CHLORIDE. [Concomitant]
     Active Substance: SODIUM CHLORIDE
     Dosage: 9 MILLIGRAM PER MILLILITRE
     Dates: start: 20210403, end: 20210409

REACTIONS (5)
  - Infective exacerbation of chronic obstructive airways disease [Not Recovered/Not Resolved]
  - Drug ineffective [Unknown]
  - Product administration interrupted [Unknown]
  - Intentional underdose [Unknown]
  - Drug ineffective [Unknown]

NARRATIVE: CASE EVENT DATE: 202104
